FAERS Safety Report 8453045-9 (Version None)
Quarter: 2012Q2

REPORT INFORMATION
  Report Type: 
  Country: None (occurrence: None)
  Receive Date: 20120620
  Receipt Date: 20120506
  Transmission Date: 20120825
  Serious: No
  Sender: FDA-Public Use
  Company Number: US-VERTEX PHARMACEUTICALS INC.-AE-2012-006536

PATIENT
  Sex: Male
  Weight: 77.18 kg

DRUGS (8)
  1. MORPHINE [Concomitant]
     Indication: BACK PAIN
  2. ZOLOFT [Concomitant]
     Indication: DEPRESSION
  3. RIBAVIRIN [Concomitant]
     Indication: HEPATITIS C
     Route: 048
     Dates: start: 20120215
  4. PEGASYS [Concomitant]
     Indication: HEPATITIS C
     Route: 058
     Dates: start: 20120215
  5. METFORMIN HCL [Concomitant]
     Indication: DIABETES MELLITUS
  6. GLUCOPHAGE [Concomitant]
     Indication: DIABETES MELLITUS
  7. INCIVEK [Suspect]
     Indication: HEPATITIS C
     Route: 048
     Dates: start: 20120215
  8. URETIC [Concomitant]
     Indication: HYPERTENSION

REACTIONS (2)
  - INAPPROPRIATE SCHEDULE OF DRUG ADMINISTRATION [None]
  - FEELING ABNORMAL [None]
